FAERS Safety Report 6839182-0 (Version None)
Quarter: 2010Q3

REPORT INFORMATION
  Report Type: 
  Country: None (occurrence: None)
  Receive Date: 20100714
  Receipt Date: 20100226
  Transmission Date: 20110219
  Serious: Yes (Other)
  Sender: FDA-Public Use
  Company Number: US-ASTRAZENECA-2010SE32060

PATIENT
  Age: 16581 Day
  Sex: Male
  Weight: 100.7 kg

DRUGS (4)
  1. SEROQUEL [Suspect]
     Route: 048
     Dates: start: 20051109
  2. DIGOXIN [Concomitant]
     Dates: start: 20080215
  3. NIACIN [Concomitant]
     Dates: start: 20080124
  4. TOPROL-XL [Concomitant]
     Dosage: 25MG TO 50MG
     Dates: start: 20080124

REACTIONS (11)
  - ARTERIOSCLEROSIS [None]
  - COLONIC POLYP [None]
  - DRUG ABUSE [None]
  - ERECTILE DYSFUNCTION [None]
  - ESSENTIAL HYPERTENSION [None]
  - GASTRITIS [None]
  - HYPERLIPIDAEMIA [None]
  - OBESITY [None]
  - SICKLE CELL TRAIT [None]
  - TYPE 1 DIABETES MELLITUS [None]
  - TYPE 2 DIABETES MELLITUS [None]
